FAERS Safety Report 17435316 (Version 1)
Quarter: 2020Q1

REPORT INFORMATION
  Report Type: Spontaneous
  Country: US (occurrence: US)
  Receive Date: 20200204
  Receipt Date: 20200204
  Transmission Date: 20200409
  Serious: No
  Sender: FDA-Public Use
  Company Number: None

PATIENT
  Age: 49 Year
  Sex: Female

DRUGS (1)
  1. AFINITOR [Suspect]
     Active Substance: EVEROLIMUS
     Indication: ILL-DEFINED DISORDER
     Route: 048
     Dates: start: 20200108

REACTIONS (2)
  - Dermatitis [None]
  - Stomatitis [None]

NARRATIVE: CASE EVENT DATE: 20200131
